FAERS Safety Report 7777307-3 (Version None)
Quarter: 2011Q3

REPORT INFORMATION
  Report Type: 
  Country: None (occurrence: None)
  Receive Date: 20110926
  Receipt Date: 20110919
  Transmission Date: 20111222
  Serious: Yes (Hospitalization, Other)
  Sender: FDA-Public Use
  Company Number: PHHO2007ES17719

PATIENT
  Sex: Male
  Weight: 59.3 kg

DRUGS (5)
  1. PREDNISOLONE [Concomitant]
     Indication: IMMUNOSUPPRESSION
     Dates: start: 20071015
  2. MYCOPHENOLATE MOFETIL (CELLCEPT) [Concomitant]
     Dosage: 720 MG, UNK
     Route: 048
     Dates: start: 20071014
  3. TACROLIMUS [Suspect]
     Indication: RENAL TRANSPLANT
     Dosage: 3 MG, UNK
     Route: 048
     Dates: start: 20071014
  4. MYFORTIC [Suspect]
     Indication: RENAL TRANSPLANT
     Dosage: 720 MG, UNK
     Route: 048
     Dates: start: 20071012
  5. SEPTRA [Concomitant]
     Indication: ANTIBIOTIC PROPHYLAXIS

REACTIONS (9)
  - SEPTIC SHOCK [None]
  - URETERIC FISTULA [None]
  - HYPERKALAEMIA [None]
  - ESCHERICHIA BACTERAEMIA [None]
  - RENAL IMPAIRMENT [None]
  - URINARY ANASTOMOTIC LEAK [None]
  - PYURIA [None]
  - NEOPLASM MALIGNANT [None]
  - BLOOD CREATININE ABNORMAL [None]
